FAERS Safety Report 9271957 (Version 2)
Quarter: 2013Q2

REPORT INFORMATION
  Report Type: Spontaneous
  Country: FR (occurrence: FR)
  Receive Date: 20130506
  Receipt Date: 20130523
  Transmission Date: 20140414
  Serious: Yes (Other)
  Sender: FDA-Public Use
  Company Number: FR-TEVA-401210ISR

PATIENT
  Sex: Male

DRUGS (2)
  1. TERBINAFINE TEVA 250 MG [Suspect]
     Indication: FUNGAL INFECTION
     Route: 048
     Dates: start: 20130215, end: 20130315
  2. DECAPEPTYL [Interacting]
     Indication: PROSTATE CANCER METASTATIC

REACTIONS (3)
  - Prostatic specific antigen increased [Not Recovered/Not Resolved]
  - Drug interaction [Unknown]
  - Hyperphagia [Unknown]
